FAERS Safety Report 6779840-X (Version None)
Quarter: 2010Q2

REPORT INFORMATION
  Report Type: 
  Country: None (occurrence: None)
  Receive Date: 20100618
  Receipt Date: 20100609
  Transmission Date: 20101027
  Serious: Yes (Other)
  Sender: FDA-Public Use
  Company Number: DE-PFIZER INC-2010072081

PATIENT
  Age: 36 Year
  Sex: Female

DRUGS (1)
  1. AZULFIDINE [Suspect]
     Dosage: 1500MG DAILY
     Dates: start: 20100201

REACTIONS (3)
  - ELECTROCARDIOGRAM ABNORMAL [None]
  - OEDEMA [None]
  - TACHYCARDIA [None]
